FAERS Safety Report 24565274 (Version 2)
Quarter: 2024Q4

REPORT INFORMATION
  Report Type: Report from Study
  Country: JP (occurrence: JP)
  Receive Date: 20241030
  Receipt Date: 20241209
  Transmission Date: 20250115
  Serious: Yes (Hospitalization)
  Sender: ABBVIE
  Company Number: JP-ABBVIE-5819240

PATIENT
  Age: 54 Year
  Sex: Female

DRUGS (18)
  1. FOSCARBIDOPA\FOSLEVODOPA [Suspect]
     Active Substance: FOSCARBIDOPA\FOSLEVODOPA
     Indication: Parkinson^s disease
     Dosage: STANDARD: 0.3 ML/H, DURING NIGHT: 0.15 ML/H, LAST DOSE-2024
     Route: 058
     Dates: start: 20240509
  2. FOSCARBIDOPA\FOSLEVODOPA [Suspect]
     Active Substance: FOSCARBIDOPA\FOSLEVODOPA
     Dosage: STANDARD: 0.3 ML/H, DURING NIGHT: 0.20 ML/H, LAST DOSE -2024
     Route: 058
     Dates: start: 20240529
  3. FOSCARBIDOPA\FOSLEVODOPA [Suspect]
     Active Substance: FOSCARBIDOPA\FOSLEVODOPA
     Dosage: STANDARD: 0.28 ML/H, DURING NIGHT: 0.15 ML/H, LAST DOSE -2024
     Route: 058
     Dates: start: 20240510
  4. FOSCARBIDOPA\FOSLEVODOPA [Suspect]
     Active Substance: FOSCARBIDOPA\FOSLEVODOPA
     Dosage: STANDARD: 0.3 ML/H, DURING NIGHT: 0.15 ML/H
     Route: 058
     Dates: start: 20240701, end: 20240703
  5. FOSCARBIDOPA\FOSLEVODOPA [Suspect]
     Active Substance: FOSCARBIDOPA\FOSLEVODOPA
     Dosage: STANDARD: 0.3 ML/H, DURING NIGHT: 0.15 ML/H, LAST DOSE-2024
     Route: 058
     Dates: start: 20240515
  6. FOSCARBIDOPA\FOSLEVODOPA [Suspect]
     Active Substance: FOSCARBIDOPA\FOSLEVODOPA
     Route: 058
     Dates: end: 20240918
  7. ZONISAMIDE [Concomitant]
     Active Substance: ZONISAMIDE
     Indication: Parkinson^s disease
     Dosage: 50 MILLIGRAM
     Route: 048
  8. Carbidopa hydrate and levodopa [Concomitant]
     Indication: Parkinson^s disease
     Dosage: TIME INTERVAL: 0.16666667 DAYS: 900 MILLIGRAM
     Route: 048
     Dates: start: 20240522
  9. Carbidopa hydrate and levodopa [Concomitant]
     Indication: Parkinson^s disease
     Dosage: 100 MILLIGRAM?FREQUENCY TEXT: PRN
     Route: 048
     Dates: start: 20240528
  10. ISTRADEFYLLINE [Concomitant]
     Active Substance: ISTRADEFYLLINE
     Indication: Parkinson^s disease
     Dosage: 20 MILLIGRAM
     Route: 048
  11. AMANTADINE HYDROCHLORIDE [Concomitant]
     Active Substance: AMANTADINE HYDROCHLORIDE
     Indication: Parkinson^s disease
     Dosage: 100 MILLIGRAM
     Route: 048
     Dates: start: 20240515
  12. AMANTADINE HYDROCHLORIDE [Concomitant]
     Active Substance: AMANTADINE HYDROCHLORIDE
     Indication: Parkinson^s disease
     Dosage: TIME INTERVAL: 0.33333333 DAYS: 150 MILLIGRAM
     Route: 048
     Dates: end: 20240514
  13. SAFINAMIDE MESYLATE [Concomitant]
     Active Substance: SAFINAMIDE MESYLATE
     Indication: Parkinson^s disease
     Dosage: 100 MILLIGRAM
     Route: 048
     Dates: start: 20240604
  14. SAFINAMIDE MESYLATE [Concomitant]
     Active Substance: SAFINAMIDE MESYLATE
     Indication: Parkinson^s disease
     Dosage: 50 MILLIGRAM
     Route: 048
     Dates: end: 20240603
  15. OPICAPONE [Concomitant]
     Active Substance: OPICAPONE
     Indication: Parkinson^s disease
     Dosage: 25 MILLIGRAM
     Route: 048
     Dates: start: 20240521
  16. NEUPRO [Suspect]
     Active Substance: ROTIGOTINE
     Indication: Parkinson^s disease
     Dosage: 22.5 MILLIGRAM
     Route: 062
     Dates: start: 20240621, end: 20240630
  17. NEUPRO [Suspect]
     Active Substance: ROTIGOTINE
     Indication: Parkinson^s disease
     Dosage: 18 MILLIGRAM
     Route: 062
     Dates: start: 20240701
  18. NEUPRO [Suspect]
     Active Substance: ROTIGOTINE
     Indication: Parkinson^s disease
     Dosage: 18 MILLIGRAM, DECREASED
     Route: 062
     Dates: end: 20240620

REACTIONS (10)
  - Asthenia [Unknown]
  - Hallucination, auditory [Recovered/Resolved]
  - Asthenia [Unknown]
  - Anxiety disorder [Recovering/Resolving]
  - Infusion site erythema [Recovered/Resolved]
  - Hallucination [Recovered/Resolved]
  - Infusion site induration [Recovered/Resolved]
  - Unevaluable event [Unknown]
  - Hallucination, olfactory [Recovered/Resolved]
  - Hallucination, visual [Recovered/Resolved]

NARRATIVE: CASE EVENT DATE: 20240101
